FAERS Safety Report 10752883 (Version 2)
Quarter: 2018Q1

REPORT INFORMATION
  Report Type: Spontaneous
  Country: FR (occurrence: FR)
  Receive Date: 20150130
  Receipt Date: 20180215
  Transmission Date: 20180508
  Serious: Yes (Life-Threatening)
  Sender: FDA-Public Use
  Company Number: FR-NOVOPROD-436588

PATIENT
  Age: 72 Year
  Sex: Male
  Weight: 115 kg

DRUGS (15)
  1. PREVISCAN                          /00261401/ [Concomitant]
     Active Substance: PENTOXIFYLLINE
     Dosage: UNK (0.5 DF IN EVENING)
     Route: 065
  2. BISOCE [Concomitant]
     Active Substance: BISOPROLOL
     Dosage: 2.5 MG, QD (IN MORNING)
     Route: 065
  3. CRESTOR [Concomitant]
     Active Substance: ROSUVASTATIN CALCIUM
     Dosage: UNK (5 MG IN EVENING)
     Route: 065
  4. PERINDOPRIL                        /00790702/ [Concomitant]
     Dosage: UNK (2 DF IN MORNING)
     Route: 065
  5. IMOVANE [Concomitant]
     Active Substance: ZOPICLONE
     Dosage: UNK  (1 DF IN EVENING)
     Route: 065
  6. LANTUS [Concomitant]
     Active Substance: INSULIN GLARGINE
     Dosage: 30 IU, QD IN MORNING
     Route: 065
  7. ALPRAZOLAMS [Concomitant]
     Dosage: UNK (0.5 MG AT 08:00PM)
     Route: 065
  8. METFORMIN [Concomitant]
     Active Substance: METFORMIN HYDROCHLORIDE
     Dosage: 1000 MG, QD (MORING AND EVENING)
     Route: 065
  9. DIAMICRON [Concomitant]
     Active Substance: GLICLAZIDE
     Dosage: 120 MG, QD (60 MG TWICE DAILY)
     Route: 065
  10. DAONIL [Concomitant]
     Active Substance: GLYBURIDE
     Dosage: UNK (AT NOON)
     Route: 065
  11. VICTOZA [Suspect]
     Active Substance: LIRAGLUTIDE
     Indication: TYPE 2 DIABETES MELLITUS
     Dosage: 1.2 MG, QD
     Route: 058
     Dates: start: 201307, end: 201411
  12. LEVOTHYROX [Concomitant]
     Active Substance: LEVOTHYROXINE
     Dosage: 200 ?G, QD (2 TABLETS IN MORNING)
     Route: 065
  13. FUROSEMIDE. [Concomitant]
     Active Substance: FUROSEMIDE
     Dosage: UNK (1.5 DF IN MORNING)
     Route: 065
  14. APIDRA [Concomitant]
     Active Substance: INSULIN GLULISINE
     Dosage: UNK, IN THE MORNING
     Route: 065
  15. DOSTINEX [Concomitant]
     Active Substance: CABERGOLINE
     Dosage: UNK (2 DF ON WEDNESDAY)
     Route: 065

REACTIONS (1)
  - Adenocarcinoma pancreas [Not Recovered/Not Resolved]

NARRATIVE: CASE EVENT DATE: 201411
